FAERS Safety Report 5512942-4 (Version None)
Quarter: 2007Q4

REPORT INFORMATION
  Report Type: 
  Country: None (occurrence: None)
  Receive Date: 20071108
  Receipt Date: 20071108
  Transmission Date: 20080405
  Serious: No
  Sender: FDA-Public Use
  Company Number: None

PATIENT
  Age: 62 Year
  Sex: Female
  Weight: 58.9676 kg

DRUGS (2)
  1. TYLENOL ALLERGY COMPLETE [Suspect]
     Dosage: 2 TABLETS
  2. TYLENOL SINUS CONGESTION + PAIN [Suspect]

REACTIONS (2)
  - ABDOMINAL PAIN UPPER [None]
  - THROAT IRRITATION [None]
